FAERS Safety Report 8909018 (Version 2)
Quarter: 2013Q2

REPORT INFORMATION
  Report Type: Report from Study
  Country: US (occurrence: US)
  Receive Date: 20121114
  Receipt Date: 20130424
  Transmission Date: 20140414
  Serious: Yes (Hospitalization, Other)
  Sender: FDA-Public Use
  Company Number: US-ACTELION-A-NJ2012-61667

PATIENT
  Age: 60 Year
  Sex: Female

DRUGS (2)
  1. TRACLEER [Suspect]
     Indication: PULMONARY ARTERIAL HYPERTENSION
     Dosage: UNK
     Route: 048
     Dates: start: 20111026
  2. SILDENAFIL [Concomitant]

REACTIONS (4)
  - Dialysis [Unknown]
  - Dyspnoea [Unknown]
  - Abdominal discomfort [Unknown]
  - Fluid retention [Unknown]
